FAERS Safety Report 12047022 (Version 5)
Quarter: 2020Q3

REPORT INFORMATION
  Report Type: Report from Study
  Country: JP (occurrence: JP)
  Receive Date: 20160209
  Receipt Date: 20160901
  Transmission Date: 20201104
  Serious: Yes (Hospitalization, Other)
  Sender: FDA-Public Use
  Company Number: JP-ROCHE-1492388

PATIENT
  Age: 74 Year
  Sex: Female
  Weight: 44 kg

DRUGS (39)
  1. ALECTINIB. [Suspect]
     Active Substance: ALECTINIB
     Indication: LUNG ADENOCARCINOMA
     Route: 048
     Dates: start: 20140918, end: 20141010
  2. ALECTINIB. [Interacting]
     Active Substance: ALECTINIB
     Indication: LUNG ADENOCARCINOMA
     Route: 048
     Dates: start: 20141011, end: 20141024
  3. WARFARIN [Interacting]
     Active Substance: WARFARIN
     Indication: PRODUCT USED FOR UNKNOWN INDICATION
     Route: 048
     Dates: end: 20141229
  4. OXYCONTIN [Interacting]
     Active Substance: OXYCODONE HYDROCHLORIDE
     Indication: LUNG ADENOCARCINOMA
     Route: 048
     Dates: start: 20140816, end: 20140911
  5. ALIMTA [Suspect]
     Active Substance: PEMETREXED DISODIUM
     Indication: LUNG ADENOCARCINOMA
     Route: 041
     Dates: start: 20160129, end: 20160129
  6. PANTOSIN [Concomitant]
     Active Substance: PANTETHINE
     Indication: GASTRITIS
     Route: 048
     Dates: end: 20150302
  7. CALONAL [Concomitant]
     Active Substance: ACETAMINOPHEN
     Indication: LUNG ADENOCARCINOMA
     Route: 048
     Dates: end: 20140925
  8. OXYCONTIN [Interacting]
     Active Substance: OXYCODONE HYDROCHLORIDE
     Indication: LUNG ADENOCARCINOMA
     Route: 048
     Dates: start: 20141107, end: 20141115
  9. OXYCONTIN [Interacting]
     Active Substance: OXYCODONE HYDROCHLORIDE
     Indication: LUNG ADENOCARCINOMA
     Route: 048
     Dates: start: 20141215, end: 20141228
  10. FLUNITRAZEPAM [Concomitant]
     Active Substance: FLUNITRAZEPAM
     Route: 048
  11. OXYCONTIN [Interacting]
     Active Substance: OXYCODONE HYDROCHLORIDE
     Indication: LUNG ADENOCARCINOMA
     Route: 048
     Dates: start: 20150219, end: 20150219
  12. MARZULENE?S [Concomitant]
     Active Substance: GLUTAMINE\SODIUM GUALENATE
     Indication: GASTRITIS
     Route: 048
     Dates: end: 20150302
  13. OXYCONTIN [Interacting]
     Active Substance: OXYCODONE HYDROCHLORIDE
     Indication: LUNG ADENOCARCINOMA
     Route: 048
     Dates: start: 20140912, end: 20140916
  14. OXYCONTIN [Interacting]
     Active Substance: OXYCODONE HYDROCHLORIDE
     Indication: LUNG ADENOCARCINOMA
     Route: 048
     Dates: start: 20141229, end: 20150119
  15. OXINORM (JAPAN) [Interacting]
     Active Substance: OXYCODONE HYDROCHLORIDE
     Indication: LUNG ADENOCARCINOMA
     Dosage: DOSAGE DURING A DAY: 30MG?40MG?TAKEN FOR PAIN
     Route: 048
  16. CELECOX [Concomitant]
     Active Substance: CELECOXIB
     Indication: LUNG ADENOCARCINOMA
     Route: 048
  17. FLUNITRAZEPAM [Concomitant]
     Active Substance: FLUNITRAZEPAM
     Dosage: TAKEN FOR INSOMNIA
     Route: 048
     Dates: start: 20150416, end: 20150610
  18. OXYCONTIN [Interacting]
     Active Substance: OXYCODONE HYDROCHLORIDE
     Indication: LUNG ADENOCARCINOMA
     Route: 048
     Dates: start: 20141020, end: 20141106
  19. OXYCONTIN [Interacting]
     Active Substance: OXYCODONE HYDROCHLORIDE
     Indication: LUNG ADENOCARCINOMA
     Route: 048
     Dates: start: 20141116, end: 20141214
  20. OXINORM (JAPAN) [Interacting]
     Active Substance: OXYCODONE HYDROCHLORIDE
     Indication: LUNG ADENOCARCINOMA
     Dosage: TAKEN AS NEEDED
     Route: 048
     Dates: end: 20141106
  21. OXINORM (JAPAN) [Interacting]
     Active Substance: OXYCODONE HYDROCHLORIDE
     Indication: LUNG ADENOCARCINOMA
     Dosage: DOSAGE IS UNCERTAIN.
     Route: 048
     Dates: start: 20150207, end: 20150310
  22. OXINORM (JAPAN) [Interacting]
     Active Substance: OXYCODONE HYDROCHLORIDE
     Indication: LUNG ADENOCARCINOMA
     Dosage: DOSAGE IS UNCERTAIN.
     Route: 048
     Dates: start: 20150311
  23. PRIMPERAN [Concomitant]
     Active Substance: METOCLOPRAMIDE HYDROCHLORIDE
     Dosage: DOSAGE DURING A DAY: 5?10MG THE FRACTIONATION DOSE FREQUENCY IS UNCERTAIN.
     Route: 048
     Dates: start: 20150311
  24. ALECTINIB. [Interacting]
     Active Substance: ALECTINIB
     Indication: LUNG ADENOCARCINOMA
     Route: 048
     Dates: start: 20150117
  25. OXYCONTIN [Interacting]
     Active Substance: OXYCODONE HYDROCHLORIDE
     Indication: LUNG ADENOCARCINOMA
     Route: 048
     Dates: start: 20150207, end: 20150218
  26. PRIMPERAN [Concomitant]
     Active Substance: METOCLOPRAMIDE HYDROCHLORIDE
     Indication: LUNG ADENOCARCINOMA
     Route: 042
     Dates: start: 20140909, end: 20141009
  27. DONEPEZIL HYDROCHLORIDE. [Concomitant]
     Active Substance: DONEPEZIL HYDROCHLORIDE
     Route: 048
     Dates: end: 20150225
  28. OXINORM (JAPAN) [Interacting]
     Active Substance: OXYCODONE HYDROCHLORIDE
     Indication: LUNG ADENOCARCINOMA
     Dosage: DOSAGE IS UNCERTAIN.
     Route: 048
     Dates: start: 20141107, end: 20141218
  29. GLYCEOL [Concomitant]
     Active Substance: GLYCERIN
     Indication: LUNG ADENOCARCINOMA
     Route: 042
     Dates: start: 20140917, end: 20140930
  30. CELECOX [Concomitant]
     Active Substance: CELECOXIB
     Indication: LUNG ADENOCARCINOMA
     Dosage: DOSAGE DURING A DAY: 200MG? 100MG THE FRACTIONATION DOSE FREQUENCY IS UNCERATIN.
     Route: 048
     Dates: start: 20150505
  31. PURSENNID [Concomitant]
     Dosage: TAKEN FOR CONSTIPATION
     Route: 048
  32. SENNOSIDE [Concomitant]
     Active Substance: SENNOSIDES
     Dosage: DOSAGE DURING A DAY: 48 (UNIT UNCERTAINTY)?TAKEN FOR CONSTIPATION
     Route: 048
  33. ALECTINIB. [Interacting]
     Active Substance: ALECTINIB
     Indication: LUNG ADENOCARCINOMA
     Route: 048
     Dates: start: 20141031, end: 20141228
  34. WARFARIN [Interacting]
     Active Substance: WARFARIN
     Indication: LUNG ADENOCARCINOMA
  35. OXYCONTIN [Interacting]
     Active Substance: OXYCODONE HYDROCHLORIDE
     Indication: LUNG ADENOCARCINOMA
     Route: 048
     Dates: start: 20140917, end: 20141019
  36. OXYCONTIN [Interacting]
     Active Substance: OXYCODONE HYDROCHLORIDE
     Indication: LUNG ADENOCARCINOMA
     Route: 048
     Dates: start: 20150120, end: 20150206
  37. OXINORM (JAPAN) [Interacting]
     Active Substance: OXYCODONE HYDROCHLORIDE
     Indication: LUNG ADENOCARCINOMA
     Dosage: DOSAGE IS UNCERTAIN.
     Route: 048
     Dates: start: 20141219, end: 20150206
  38. ALIMTA [Suspect]
     Active Substance: PEMETREXED DISODIUM
     Indication: LUNG ADENOCARCINOMA
     Route: 041
     Dates: start: 20160219, end: 20160311
  39. MOHRUS TAPE L [Concomitant]
     Indication: LUNG ADENOCARCINOMA
     Dosage: AT THE PAIN
     Route: 061

REACTIONS (26)
  - Anaemia [Recovering/Resolving]
  - Drug interaction [Unknown]
  - Influenza [Recovered/Resolved]
  - Constipation [Recovered/Resolved]
  - International normalised ratio increased [Recovered/Resolved]
  - Vomiting [Recovering/Resolving]
  - Blood urea increased [Recovered/Resolved]
  - Hypokalaemia [Recovered/Resolved]
  - Stomatitis [Recovered/Resolved]
  - Oedema peripheral [Recovering/Resolving]
  - Interstitial lung disease [Recovering/Resolving]
  - White blood cell count decreased [Recovered/Resolved]
  - Dry eye [Recovering/Resolving]
  - Cell marker increased [Unknown]
  - Somnolence [Recovering/Resolving]
  - Pyrexia [Recovered/Resolved]
  - Diarrhoea [Recovered/Resolved]
  - Decreased appetite [Unknown]
  - Hyperkalaemia [Recovered/Resolved]
  - Blood creatinine increased [Recovered/Resolved]
  - Blood bilirubin increased [Recovered/Resolved]
  - Hypocalcaemia [Recovered/Resolved]
  - Hypochloraemia [Recovered/Resolved]
  - Dry skin [Recovering/Resolving]
  - Neutropenia [Recovered/Resolved]
  - Rash [Recovered/Resolved]

NARRATIVE: CASE EVENT DATE: 20140924
